FAERS Safety Report 9439646 (Version 3)
Quarter: 2013Q3

REPORT INFORMATION
  Report Type: Spontaneous
  Country: US (occurrence: US)
  Receive Date: 20130805
  Receipt Date: 20130826
  Transmission Date: 20140515
  Serious: No
  Sender: FDA-Public Use
  Company Number: US-PFIZER INC-2013225246

PATIENT
  Age: 58 Year
  Sex: Female
  Weight: 81.63 kg

DRUGS (4)
  1. LYRICA [Suspect]
     Indication: FIBROMYALGIA
     Dosage: 150 MG, 3X/DAY
     Route: 048
     Dates: start: 2013
  2. TIZANIDINE [Suspect]
     Indication: HYPOTONIA
     Dosage: 4 MG, AT NIGHT
  3. TIZANIDINE [Suspect]
     Indication: FIBROMYALGIA
  4. MELOXICAM [Concomitant]
     Indication: FIBROMYALGIA
     Dosage: 15 MG, 1X/DAY

REACTIONS (4)
  - Back pain [Unknown]
  - Increased appetite [Not Recovered/Not Resolved]
  - Weight increased [Unknown]
  - Drug effect decreased [Unknown]
